FAERS Safety Report 17164376 (Version 1)
Quarter: 2019Q4

REPORT INFORMATION
  Report Type: Spontaneous
  Country: NL (occurrence: NL)
  Receive Date: 20191217
  Receipt Date: 20191217
  Transmission Date: 20200122
  Serious: Yes (Hospitalization)
  Sender: FDA-Public Use
  Company Number: NL-MYLANLABS-2019M1123090

PATIENT
  Age: 64 Year
  Sex: Female
  Weight: 87 kg

DRUGS (4)
  1. TIOTRUS [Concomitant]
     Dosage: UNK
  2. GREPID [Concomitant]
     Active Substance: CLOPIDOGREL BESILATE
     Dosage: UNK
  3. SIMVASTATIN. [Suspect]
     Active Substance: SIMVASTATIN
     Indication: CEREBROVASCULAR ACCIDENT PROPHYLAXIS
     Dosage: 1
     Route: 048
     Dates: start: 20170402, end: 20181215
  4. FOSTER                             /00500401/ [Concomitant]
     Active Substance: PIROXICAM
     Dosage: UNK

REACTIONS (1)
  - Pancreatitis chronic [Recovered/Resolved]

NARRATIVE: CASE EVENT DATE: 201707
